FAERS Safety Report 7321884-3 (Version None)
Quarter: 2011Q1

REPORT INFORMATION
  Report Type: 
  Country: None (occurrence: None)
  Receive Date: 20110228
  Receipt Date: 20110222
  Transmission Date: 20110831
  Serious: Yes (Death, Hospitalization)
  Sender: FDA-Public Use
  Company Number: CL-ROCHE-696978

PATIENT
  Sex: Male
  Weight: 74 kg

DRUGS (5)
  1. PEGINTERFERON ALFA-2A [Suspect]
     Route: 058
     Dates: start: 20090401
  2. OMEPRAZOLE [Concomitant]
  3. FUROSEMIDE [Concomitant]
  4. ACENOCUMAROLUM [Concomitant]
     Indication: THROMBOSIS PROPHYLAXIS
     Dosage: DRUG NAME REPORTED AS ACENOCUMAROL (NEOSINTROM TABLETS 4 MG)
     Route: 048
  5. PEGINTERFERON ALFA-2A [Suspect]
     Route: 058
     Dates: start: 20100521, end: 20100805

REACTIONS (4)
  - SEPSIS [None]
  - HEPATIC ENCEPHALOPATHY [None]
  - ABDOMINAL PAIN [None]
  - THROMBOSIS [None]
